FAERS Safety Report 19878985 (Version 1)
Quarter: 2021Q3

REPORT INFORMATION
  Report Type: Spontaneous
  Country: US (occurrence: US)
  Receive Date: 20210924
  Receipt Date: 20210924
  Transmission Date: 20211014
  Serious: Yes (Hospitalization, Other)
  Sender: FDA-Public Use
  Company Number: US-ABBVIE-21K-163-4090286-00

PATIENT
  Age: 74 Year
  Sex: Male

DRUGS (5)
  1. LEVOTHYROXINE. [Suspect]
     Active Substance: LEVOTHYROXINE
     Indication: HYPOTHYROIDISM
     Route: 048
     Dates: start: 2003, end: 2008
  2. KELP [Concomitant]
     Active Substance: KELP
     Indication: HYPOTHYROIDISM
     Dosage: ONCE A DAY
  3. BOVINE (UNSPECIFIED) [Suspect]
     Active Substance: UNSPECIFIED INGREDIENT
     Indication: HYPOTHYROIDISM
     Route: 065
     Dates: end: 2008
  4. IRON [Suspect]
     Active Substance: IRON
     Indication: HYPOTHYROIDISM
     Route: 065
  5. SYNTHROID [Suspect]
     Active Substance: LEVOTHYROXINE SODIUM
     Indication: HYPOTHYROIDISM
     Route: 048
     Dates: start: 2003, end: 2008

REACTIONS (7)
  - Exercise tolerance decreased [Unknown]
  - Pneumonia [Recovered/Resolved]
  - COVID-19 [Recovered/Resolved]
  - Blood thyroid stimulating hormone increased [Unknown]
  - Therapeutic product effect delayed [Unknown]
  - Toxicity to various agents [Unknown]
  - Autoimmune thyroiditis [Unknown]

NARRATIVE: CASE EVENT DATE: 2021
